FAERS Safety Report 6569720-7 (Version None)
Quarter: 2010Q1

REPORT INFORMATION
  Report Type: 
  Country: None (occurrence: None)
  Receive Date: 20100204
  Receipt Date: 20100128
  Transmission Date: 20100710
  Serious: Yes (Hospitalization, Other)
  Sender: FDA-Public Use
  Company Number: PHHY2009BR47298

PATIENT
  Sex: Female

DRUGS (11)
  1. TRILEPTAL [Suspect]
     Indication: PARKINSON'S DISEASE
     Dosage: 1 DF, BID
     Route: 048
     Dates: start: 20090701
  2. ATLANSIL [Concomitant]
     Indication: CORONARY ARTERIAL STENT INSERTION
     Dosage: 1 TABLET FROM MONDAY TO FRIDAY
     Route: 048
  3. CITALOPRAM [Concomitant]
     Indication: ANXIETY
     Dosage: 1 TABLET DAILY
     Route: 048
     Dates: start: 20090101
  4. CAPTOPRIL [Concomitant]
     Indication: CARDIAC DISORDER
     Dosage: 5 TABLETS DAILY
     Route: 048
  5. SIMVASTATIN [Concomitant]
     Indication: CARDIAC DISORDER
     Dosage: 1 TABLET DAILY
     Route: 048
  6. SUSTRATE [Concomitant]
     Indication: CARDIAC DISORDER
     Dosage: 2 TABLETS DAILY
     Route: 048
  7. PLAVIX [Concomitant]
     Indication: ANTICOAGULANT THERAPY
     Dosage: 1 TABLET DAILY
     Route: 048
  8. MIRTAZAPINE [Concomitant]
     Indication: SLEEP DISORDER
     Dosage: 0.5 TABLET DAILY
  9. ENDOFOLIN [Concomitant]
     Indication: ABDOMINAL DISCOMFORT
     Dosage: 1 TABLET DAILY
  10. PANTOPRAZOLE SODIUM [Concomitant]
     Indication: ABDOMINAL DISCOMFORT
     Dosage: 1 TABLET DAILY
  11. TAMARINE [Concomitant]
     Indication: CONSTIPATION
     Dosage: 1 DESERT SPOON AT NIGHT

REACTIONS (13)
  - AORTIC CALCIFICATION [None]
  - ARRHYTHMIA [None]
  - ASTHENIA [None]
  - BACTERAEMIA [None]
  - BRONCHOPNEUMONIA [None]
  - COLITIS ISCHAEMIC [None]
  - CONSTIPATION [None]
  - DIARRHOEA [None]
  - EMBOLISM [None]
  - HAEMATOCHEZIA [None]
  - HYPOTENSION [None]
  - PARKINSON'S DISEASE [None]
  - PLEURAL EFFUSION [None]
